FAERS Safety Report 4365570-0 (Version None)
Quarter: 2004Q2

REPORT INFORMATION
  Report Type: 
  Country: None (occurrence: None)
  Receive Date: 20040526
  Receipt Date: 20030717
  Transmission Date: 20050107
  Serious: Yes (Other)
  Sender: FDA-Public Use
  Company Number: FR-ROCHE-342409

PATIENT
  Age: 30 Year
  Sex: Male

DRUGS (2)
  1. ROACCUTANE [Suspect]
     Indication: DRUG USE FOR UNKNOWN INDICATION
     Route: 065
  2. ROACCUTANE [Suspect]
     Route: 065

REACTIONS (3)
  - CEREBRAL ARTERY OCCLUSION [None]
  - FACIAL PALSY [None]
  - HYPOAESTHESIA [None]
